FAERS Safety Report 16838025 (Version 4)
Quarter: 2020Q2

REPORT INFORMATION
  Report Type: Report from Study
  Country: US (occurrence: US)
  Receive Date: 20190923
  Receipt Date: 20200507
  Transmission Date: 20200713
  Serious: Yes (Other)
  Sender: FDA-Public Use
  Company Number: PHEH2019US039025

PATIENT
  Age: 4 Year
  Sex: Female

DRUGS (2)
  1. ILARIS [Suspect]
     Active Substance: CANAKINUMAB
     Dosage: 40 MG, EVERY 6 WEEKS
     Route: 058
     Dates: start: 20190620
  2. ILARIS [Suspect]
     Active Substance: CANAKINUMAB
     Indication: CRYOPYRIN ASSOCIATED PERIODIC SYNDROME
     Dosage: 40 MG, EVERY 8 WEEKS
     Route: 058
     Dates: start: 20190620

REACTIONS (3)
  - Cryopyrin associated periodic syndrome [Unknown]
  - Condition aggravated [Unknown]
  - Product use issue [Recovered/Resolved]

NARRATIVE: CASE EVENT DATE: 20200421
